FAERS Safety Report 7782347-4 (Version None)
Quarter: 2011Q3

REPORT INFORMATION
  Report Type: 
  Country: None (occurrence: None)
  Receive Date: 20110927
  Receipt Date: 20110918
  Transmission Date: 20111222
  Serious: Yes (Death, Other)
  Sender: FDA-Public Use
  Company Number: DK-GILEAD-2008-0017771

PATIENT
  Age: 43 Year
  Sex: Female

DRUGS (3)
  1. NORVIR [Suspect]
     Route: 048
  2. TRUVADA [Suspect]
     Indication: HIV INFECTION
     Route: 048
  3. REYATAZ [Suspect]
     Route: 048

REACTIONS (1)
  - ABORTION SPONTANEOUS [None]
